FAERS Safety Report 4543130-6 (Version None)
Quarter: 2004Q4

REPORT INFORMATION
  Report Type: 
  Country: None (occurrence: None)
  Receive Date: 20041229
  Receipt Date: 20041228
  Transmission Date: 20050328
  Serious: Yes (Disabling, Other)
  Sender: FDA-Public Use
  Company Number: TUK2004A00137

PATIENT
  Age: 48 Year
  Sex: Male

DRUGS (2)
  1. ACTOS [Suspect]
     Indication: DIABETES MELLITUS NON-INSULIN-DEPENDENT
     Dosage: 15 MG ORAL
     Route: 048
     Dates: start: 20030930, end: 20031230
  2. ALBUTEROL SULFATE [Concomitant]

REACTIONS (3)
  - ARTHRALGIA [None]
  - ASPARTATE AMINOTRANSFERASE INCREASED [None]
  - LIVER FUNCTION TEST ABNORMAL [None]
